FAERS Safety Report 8007767-4 (Version None)
Quarter: 2011Q4

REPORT INFORMATION
  Report Type: 
  Country: None (occurrence: None)
  Receive Date: 20111227
  Receipt Date: 20111220
  Transmission Date: 20120403
  Serious: Yes (Other)
  Sender: FDA-Public Use
  Company Number: US-BAYER-200923419NA

PATIENT
  Age: 58 Year
  Sex: Male
  Weight: 103 kg

DRUGS (18)
  1. ISORDIL [Concomitant]
     Dosage: 20 MG, TID
     Route: 048
  2. TRASYLOL [Suspect]
     Dosage: 100 ML LOADING DOSE
     Route: 042
     Dates: start: 19990927, end: 19990927
  3. MEVACOR [Concomitant]
     Dosage: 20 MG, HS
     Route: 048
  4. PROPRANOLOL [Concomitant]
     Dosage: 20 MG, TID
     Route: 048
  5. PROTAMINE SULFATE [Concomitant]
     Dosage: 250 MG
     Route: 042
     Dates: start: 19990927, end: 19990927
  6. DIGOXIN [Concomitant]
     Dosage: UNK
     Route: 042
     Dates: start: 19990930
  7. ACETYLSALICYLIC ACID SRT [Concomitant]
     Dosage: 325 MG, QD
     Route: 048
  8. METOPROLOL SUCCINATE [Concomitant]
     Dosage: 50 MG, QD
     Route: 048
  9. ATENOLOL [Concomitant]
     Dosage: 25 MG, BID
     Route: 048
  10. MILRINONE [Concomitant]
     Dosage: 0.5 MCG/KG/MIN
     Route: 042
     Dates: start: 19990927
  11. TRASYLOL [Suspect]
     Indication: CORONARY ARTERY BYPASS
     Dosage: 1 ML TEST DOSE
     Route: 042
     Dates: start: 19990927, end: 19990927
  12. NOREPINEPHRINE BITARTRATE [Concomitant]
     Dosage: 0.03 TO 0.04 MCG/KG
     Route: 042
     Dates: start: 19990927, end: 19990927
  13. HEPARIN [Concomitant]
     Dosage: 10,000 UNITS
     Route: 042
     Dates: start: 19990927
  14. KEFZOL [Concomitant]
     Dosage: 1 GM
     Route: 042
     Dates: start: 19990927
  15. TRASYLOL [Suspect]
     Dosage: 50 ML/HR
     Route: 042
     Dates: start: 19990927, end: 19990927
  16. HEPARIN [Concomitant]
     Route: 041
  17. TYLENOL-500 [Concomitant]
     Dosage: 650 MG AS NEEDED
     Route: 048
  18. MANNITOL [Concomitant]
     Dosage: 25 GMS
     Route: 042
     Dates: start: 19990927, end: 19990927

REACTIONS (9)
  - UNEVALUABLE EVENT [None]
  - ANXIETY [None]
  - ANHEDONIA [None]
  - FEAR [None]
  - EMOTIONAL DISTRESS [None]
  - DEPRESSION [None]
  - RENAL FAILURE [None]
  - PAIN [None]
  - INJURY [None]
